FAERS Safety Report 9158307 (Version 1)
Quarter: 2013Q1

REPORT INFORMATION
  Report Type: Spontaneous
  Country: US (occurrence: US)
  Receive Date: 20130312
  Receipt Date: 20130312
  Transmission Date: 20140127
  Serious: Yes (Other)
  Sender: FDA-Public Use
  Company Number: US-BRISTOL-MYERS SQUIBB COMPANY-17443151

PATIENT
  Age: 46 Year
  Sex: Female
  Weight: 50.79 kg

DRUGS (2)
  1. ABATACEPT SUBQ INJECTION 125MG/ML [Suspect]
     Indication: RHEUMATOID ARTHRITIS
     Route: 058
  2. PREDNISONE [Suspect]

REACTIONS (4)
  - Depression [Unknown]
  - Dry eye [Unknown]
  - Dry mouth [Unknown]
  - Alopecia [Unknown]
